FAERS Safety Report 23709089 (Version 1)
Quarter: 2024Q2

REPORT INFORMATION
  Report Type: Spontaneous
  Country: US (occurrence: None)
  Receive Date: 20240404
  Receipt Date: 20240404
  Transmission Date: 20240715
  Serious: No
  Sender: FDA-Public Use
  Company Number: None

PATIENT
  Age: 10 Month

DRUGS (1)
  1. AMOXICILLIN [Suspect]
     Active Substance: AMOXICILLIN

REACTIONS (8)
  - Product use issue [None]
  - Product packaging quantity issue [None]
  - Manufacturing laboratory controls calibration issue [None]
  - Incorrect dose administered [None]
  - Faeces discoloured [None]
  - Decreased appetite [None]
  - Vomiting [None]
  - Irritability [None]
